FAERS Safety Report 10774583 (Version 1)
Quarter: 2015Q1

REPORT INFORMATION
  Report Type: Spontaneous
  Country: US (occurrence: None)
  Receive Date: 20150206
  Receipt Date: 20150206
  Transmission Date: 20150721
  Serious: No
  Sender: FDA-Public Use
  Company Number: HYP201409-000070

PATIENT
  Age: 14 Year
  Sex: Female
  Weight: 41.7 kg

DRUGS (4)
  1. RAVICTI [Suspect]
     Active Substance: GLYCEROL PHENYLBUTYRATE
     Indication: AMINO ACID METABOLISM DISORDER
     Route: 048
     Dates: start: 201307
  2. IRON (IRON) [Concomitant]
     Active Substance: IRON
  3. L-ARGININE (ARGININE) [Concomitant]
  4. AMINO ACIDS [Concomitant]
     Active Substance: AMINO ACIDS

REACTIONS (4)
  - Nausea [None]
  - Dyspepsia [None]
  - Abdominal pain [None]
  - Decreased appetite [None]

NARRATIVE: CASE EVENT DATE: 201311
